FAERS Safety Report 24953692 (Version 1)
Quarter: 2025Q1

REPORT INFORMATION
  Report Type: Spontaneous
  Country: JP (occurrence: JP)
  Receive Date: 20250211
  Receipt Date: 20250211
  Transmission Date: 20250408
  Serious: Yes (Hospitalization, Other)
  Sender: CHEPLAPHARM
  Company Number: JP-CHEPLA-2025001599

PATIENT
  Age: 79 Year
  Sex: Male
  Weight: 58.299 kg

DRUGS (5)
  1. HYDROXYUREA [Suspect]
     Active Substance: HYDROXYUREA
     Indication: Essential thrombocythaemia
  2. ANAGRELIDE [Concomitant]
     Active Substance: ANAGRELIDE
  3. FEBUXOSTAT [Concomitant]
     Active Substance: FEBUXOSTAT
     Indication: Hyperuricaemia
  4. ASPIRIN [Concomitant]
     Active Substance: ASPIRIN
     Dosage: DAILY DOSE: 100 MILLIGRAM
  5. POLAPREZINC [Concomitant]
     Active Substance: POLAPREZINC
     Indication: Gastritis

REACTIONS (7)
  - Ulcer [Unknown]
  - Pneumonia [Unknown]
  - Cardiac failure [Unknown]
  - Splenic infarction [Unknown]
  - Disseminated intravascular coagulation [Unknown]
  - Irritability [Unknown]
  - Epilepsy [Recovered/Resolved]
